FAERS Safety Report 10505003 (Version 2)
Quarter: 2014Q4

REPORT INFORMATION
  Report Type: Spontaneous
  Country: US (occurrence: None)
  Receive Date: 20140926
  Receipt Date: 20141017
  Transmission Date: 20150528
  Serious: Yes (Other)
  Sender: FDA-Public Use
  Company Number: US-MDCO-14-00082

PATIENT
  Age: 92 Year
  Sex: Female

DRUGS (6)
  1. LEXAPRO (ESCITALOPRAM OXALATE) (ESCITALOPRAM OXALATE) [Concomitant]
  2. LASIX [Concomitant]
     Active Substance: FUROSEMIDE
  3. CLEVIPREX [Suspect]
     Active Substance: CLEVIDIPINE
     Indication: MALIGNANT HYPERTENSION
     Dosage: 1 MG/HR, INFUSION
     Dates: start: 20140107, end: 20140108
  4. ZOSYN (PIP/TAZO) (PIPERACILLIN SODIUM, TAZOBACTAM SODIUM?) [Concomitant]
  5. METOPROLOL (METOPROLOL) (METOPROLOL) [Concomitant]
     Active Substance: METOPROLOL
  6. HYDRALAZINE (HYDRALAZINE) (HYDRALAZINE) [Concomitant]

REACTIONS (5)
  - Atrial fibrillation [None]
  - Blood sodium increased [None]
  - Bradycardia [None]
  - Blood urea increased [None]
  - Electrocardiogram QT prolonged [None]

NARRATIVE: CASE EVENT DATE: 20140107
